FAERS Safety Report 5392296-7 (Version None)
Quarter: 2007Q3

REPORT INFORMATION
  Report Type: 
  Country: None (occurrence: None)
  Receive Date: 20070720
  Receipt Date: 20070709
  Transmission Date: 20080115
  Serious: Yes (Death)
  Sender: FDA-Public Use
  Company Number: JP-ROCHE-503238

PATIENT
  Age: 70 Year
  Sex: Male
  Weight: 60 kg

DRUGS (40)
  1. CERCINE [Suspect]
     Indication: CONVULSION PROPHYLAXIS
     Route: 048
     Dates: start: 20060924, end: 20060926
  2. ROHYPNOL [Suspect]
     Route: 048
     Dates: start: 20060913, end: 20060915
  3. ROHYPNOL [Suspect]
     Route: 048
     Dates: start: 20060918, end: 20060919
  4. ROHYPNOL [Suspect]
     Route: 048
     Dates: start: 20060921, end: 20060921
  5. ROHYPNOL [Suspect]
     Route: 048
     Dates: start: 20060923, end: 20060926
  6. NAPROXEN [Suspect]
     Indication: PYREXIA
     Route: 048
     Dates: start: 20060920, end: 20060926
  7. AMOBAN [Suspect]
     Dosage: DRUG NAME: AMOBAN TABLETS 7.5.
     Route: 048
     Dates: start: 20060920, end: 20060920
  8. AMOBAN [Suspect]
     Route: 048
     Dates: start: 20060922, end: 20060923
  9. AMOBAN [Suspect]
     Route: 048
     Dates: start: 20060925, end: 20060925
  10. MAGMITT [Suspect]
     Indication: CONSTIPATION
     Route: 048
     Dates: start: 20060829, end: 20060926
  11. PHENOBARBITAL TAB [Suspect]
     Indication: CONVULSION PROPHYLAXIS
     Route: 048
     Dates: start: 20060828, end: 20060923
  12. MYSLEE [Suspect]
     Route: 048
     Dates: start: 20060822, end: 20060822
  13. MYSLEE [Suspect]
     Route: 048
     Dates: start: 20060831, end: 20060831
  14. MYSLEE [Suspect]
     Route: 048
     Dates: start: 20060923, end: 20060923
  15. UBRETID [Suspect]
     Indication: NEUROGENIC BLADDER
     Route: 048
     Dates: start: 20060908, end: 20060929
  16. SPELEAR [Suspect]
     Indication: SPUTUM RETENTION
     Route: 048
     Dates: start: 20060914, end: 20060924
  17. SELBEX [Suspect]
     Indication: GASTRITIS
     Route: 048
     Dates: start: 20060924, end: 20060924
  18. LANSOPRAZOLE [Suspect]
     Indication: STRESS ULCER
     Route: 048
     Dates: start: 20060824, end: 20060824
  19. LANSOPRAZOLE [Suspect]
     Route: 048
     Dates: start: 20060906, end: 20060929
  20. TEGRETOL [Suspect]
     Indication: WOUND COMPLICATION
     Route: 048
     Dates: start: 20060922, end: 20060923
  21. ASPIRIN [Suspect]
     Indication: CEREBRAL INFARCTION
     Route: 048
     Dates: start: 20060830, end: 20060930
  22. POLARAMINE [Suspect]
     Indication: PRURITUS
     Route: 048
     Dates: start: 20060923, end: 20060923
  23. LOXONIN [Suspect]
     Indication: WOUND COMPLICATION
     Route: 048
     Dates: start: 20060918, end: 20060920
  24. LOXONIN [Suspect]
     Route: 048
     Dates: start: 20060923, end: 20060924
  25. VOLTAREN [Suspect]
     Indication: WOUND COMPLICATION
     Dosage: FORM: RECTAL SUPPOSITORY.
     Route: 048
     Dates: start: 20060904, end: 20060916
  26. VOLTAREN [Suspect]
     Route: 048
     Dates: start: 20060917, end: 20060917
  27. VOLTAREN [Suspect]
     Route: 048
     Dates: start: 20060918, end: 20060919
  28. VOLTAREN [Suspect]
     Route: 048
     Dates: start: 20060920, end: 20060922
  29. VOLTAREN [Suspect]
     Route: 048
     Dates: start: 20060923, end: 20060923
  30. KETOPROFEN [Suspect]
     Indication: WOUND COMPLICATION
     Dosage: FORM: TAPE. DOSE: ADJUSTED 10 X 14 CM.
     Route: 061
     Dates: start: 20060917
  31. LAXOBERON [Suspect]
     Indication: CONSTIPATION
     Dosage: DOSE: ADJUSTED.
     Route: 048
     Dates: start: 20060902
  32. RINDERON-VG [Suspect]
     Indication: RASH
     Dosage: DOSAGE ADJUSTED.
     Route: 061
     Dates: start: 20060918
  33. SOLU-MEDROL [Suspect]
     Indication: ASTHMA
     Route: 041
     Dates: start: 20060920, end: 20060921
  34. AMINOFLUID [Suspect]
     Indication: FLUID REPLACEMENT
     Route: 041
     Dates: start: 20060925, end: 20060926
  35. PASIL [Suspect]
     Indication: INFECTION
     Route: 041
     Dates: start: 20060920, end: 20060920
  36. FINIBAX [Suspect]
     Indication: INFECTION
     Route: 041
     Dates: start: 20060919, end: 20060920
  37. FLUMARIN [Suspect]
     Indication: INFECTION
     Route: 041
     Dates: start: 20060917, end: 20060917
  38. NEO-MINOPHAGEN C [Suspect]
     Indication: HEPATIC FUNCTION ABNORMAL
     Route: 041
     Dates: start: 20060901, end: 20060911
  39. NEO-MINOPHAGEN C [Suspect]
     Route: 041
     Dates: start: 20060925, end: 20060927
  40. UNSPECIFIED DRUG [Concomitant]

REACTIONS (3)
  - LIVER DISORDER [None]
  - OCULOMUCOCUTANEOUS SYNDROME [None]
  - SEPSIS [None]
